FAERS Safety Report 7214107-7 (Version None)
Quarter: 2010Q4

REPORT INFORMATION
  Report Type: 
  Country: None (occurrence: None)
  Receive Date: 20101126
  Receipt Date: 20100301
  Transmission Date: 20110411
  Serious: Yes (Other)
  Sender: FDA-Public Use
  Company Number: WAES 1003USA00411

PATIENT
  Age: 57 Year
  Sex: Female
  Weight: 71.6683 kg

DRUGS (6)
  1. FOSAMAX [Suspect]
     Indication: OSTEOPOROSIS
     Dosage: PO
     Route: 048
     Dates: start: 19991001, end: 20060801
  2. FOSAMAX [Suspect]
     Indication: OSTEOPOROSIS
     Dosage: PO
     Route: 048
     Dates: start: 19960101
  3. FOSAMAX [Suspect]
     Indication: OSTEOPOROSIS
     Dosage: 70 MG/WKY/PO
     Route: 048
  4. BONIVA [Suspect]
     Dosage: 150 MG/Q4W
     Dates: start: 20060701, end: 20080501
  5. NEXIUM [Concomitant]
  6. PREMARIN [Concomitant]

REACTIONS (13)
  - ANAEMIA [None]
  - ANXIETY [None]
  - ARTERIOSCLEROSIS CORONARY ARTERY [None]
  - BONE RESORPTION TEST ABNORMAL [None]
  - DENTAL CARIES [None]
  - DEPRESSION [None]
  - EXOSTOSIS [None]
  - EYE PAIN [None]
  - FUNGAL INFECTION [None]
  - OSTEONECROSIS OF JAW [None]
  - PERIODONTITIS [None]
  - SPINAL OSTEOARTHRITIS [None]
  - TOOTH ABSCESS [None]
